FAERS Safety Report 7096097-3 (Version None)
Quarter: 2010Q4

REPORT INFORMATION
  Report Type: 
  Country: None (occurrence: None)
  Receive Date: 20101111
  Receipt Date: 20101104
  Transmission Date: 20110411
  Serious: Yes (Other)
  Sender: FDA-Public Use
  Company Number: US-ROCHE-713502

PATIENT
  Sex: Female
  Weight: 50.8 kg

DRUGS (3)
  1. ACTEMRA [Suspect]
     Indication: RHEUMATOID ARTHRITIS
     Dosage: FORM: INFUSION
     Route: 042
  2. ARAVA [Suspect]
     Indication: RHEUMATOID ARTHRITIS
     Dosage: DOSE: 20 DAILY
     Route: 048
     Dates: start: 20080101, end: 20100601
  3. PLAQUENIL [Suspect]
     Indication: RHEUMATOID ARTHRITIS
     Dosage: DOSE:250
     Route: 048

REACTIONS (1)
  - ALOPECIA [None]
